FAERS Safety Report 12786982 (Version 1)
Quarter: 2016Q3

REPORT INFORMATION
  Report Type: Spontaneous
  Country: NL (occurrence: NL)
  Receive Date: 20160928
  Receipt Date: 20160928
  Transmission Date: 20161109
  Serious: Yes (Hospitalization)
  Sender: FDA-Public Use
  Company Number: NL-NORTHSTAR HEALTHCARE HOLDINGS-NL-2016NSR001850

PATIENT
  Age: 23 Year
  Sex: Male

DRUGS (4)
  1. BACLOFEN. [Suspect]
     Active Substance: BACLOFEN
     Dosage: 2700 MG, SINGLE
  2. BACLOFEN. [Suspect]
     Active Substance: BACLOFEN
     Dosage: 40 MG, TID
  3. MIRTAZAPINE. [Concomitant]
     Active Substance: MIRTAZAPINE
     Indication: PRODUCT USED FOR UNKNOWN INDICATION
     Dosage: 330 MG, SINGLE
  4. BACLOFEN. [Suspect]
     Active Substance: BACLOFEN
     Indication: ALCOHOLISM
     Dosage: 40 MG, TID

REACTIONS (17)
  - Respiratory acidosis [Recovered/Resolved]
  - Intentional overdose [Recovered/Resolved]
  - Respiratory failure [Recovered/Resolved]
  - Erythema [Recovered/Resolved]
  - Delusion [Recovered/Resolved]
  - Restlessness [Recovered/Resolved]
  - Suicide attempt [Recovered/Resolved]
  - Bradypnoea [Recovered/Resolved]
  - Agitation [Recovered/Resolved]
  - Movement disorder [Recovered/Resolved]
  - Hyperhidrosis [Recovered/Resolved]
  - Delirium [Recovered/Resolved]
  - Oxygen saturation decreased [Recovered/Resolved]
  - Motor dysfunction [Recovered/Resolved]
  - Drug withdrawal syndrome [Recovered/Resolved]
  - Hallucination, visual [Recovered/Resolved]
  - Anxiety [Recovered/Resolved]
